FAERS Safety Report 23433928 (Version 1)
Quarter: 2024Q1

REPORT INFORMATION
  Report Type: Spontaneous
  Country: US (occurrence: US)
  Receive Date: 20240123
  Receipt Date: 20240123
  Transmission Date: 20240409
  Serious: Yes (Other)
  Sender: FDA-Public Use
  Company Number: US-TEVA-VS-3148422

PATIENT
  Age: 31 Year

DRUGS (2)
  1. GLATIRAMER ACETATE [Suspect]
     Active Substance: GLATIRAMER ACETATE
     Indication: Multiple sclerosis
     Route: 058
  2. immunoglobulin [Concomitant]
     Route: 042

REACTIONS (7)
  - Urticarial vasculitis [Unknown]
  - Flushing [Unknown]
  - Dyspnoea [Unknown]
  - Abdominal pain [Unknown]
  - Vomiting [Unknown]
  - Loss of consciousness [Unknown]
  - Immediate post-injection reaction [Unknown]
